FAERS Safety Report 6656639-6 (Version None)
Quarter: 2010Q1

REPORT INFORMATION
  Report Type: 
  Country: None (occurrence: None)
  Receive Date: 20100329
  Receipt Date: 20100316
  Transmission Date: 20100710
  Serious: Yes (Hospitalization, Other)
  Sender: FDA-Public Use
  Company Number: US-ELI_LILLY_AND_COMPANY-US201003005009

PATIENT
  Sex: Female
  Weight: 90.703 kg

DRUGS (4)
  1. ZYPREXA [Suspect]
     Indication: DEPRESSION
     Dosage: 15 MG, UNK
     Dates: start: 20060101, end: 20091001
  2. ZYPREXA ZYDIS [Suspect]
     Indication: DEPRESSION
     Dosage: 20 MG, DAILY (1/D)
     Dates: start: 20091001
  3. ZYPREXA ZYDIS [Suspect]
     Dosage: 15 MG, DAILY (1/D)
     Dates: start: 20100101
  4. CYMBALTA [Suspect]
     Indication: DEPRESSION
     Dosage: 60 MG, DAILY (1/D)
     Dates: start: 20091001

REACTIONS (7)
  - ALOPECIA [None]
  - BLOOD GLUCOSE INCREASED [None]
  - BLOOD PRESSURE INCREASED [None]
  - DEPRESSION [None]
  - OFF LABEL USE [None]
  - PALPITATIONS [None]
  - WEIGHT INCREASED [None]
